FAERS Safety Report 11843638 (Version 1)
Quarter: 2015Q4

REPORT INFORMATION
  Report Type: Spontaneous
  Country: US (occurrence: US)
  Receive Date: 20151217
  Receipt Date: 20151217
  Transmission Date: 20160305
  Serious: No
  Sender: FDA-Public Use
  Company Number: US-HOSPIRA-2756224

PATIENT
  Sex: Female

DRUGS (1)
  1. METHOTREXATE [Suspect]
     Active Substance: METHOTREXATE
     Indication: RHEUMATOID ARTHRITIS
     Dates: start: 20150208

REACTIONS (5)
  - Poor quality drug administered [Recovered/Resolved]
  - Exposure via direct contact [Recovered/Resolved]
  - Product container seal issue [Recovered/Resolved]
  - Product container issue [Recovered/Resolved]
  - No adverse event [None]

NARRATIVE: CASE EVENT DATE: 20150208
